FAERS Safety Report 8805182 (Version 1)
Quarter: 2012Q4

REPORT INFORMATION
  Report Type: 
  Country: US (occurrence: US)
  Receive Date: 20120924
  Receipt Date: 20120924
  Transmission Date: 20130627
  Serious: Yes (Death, Other)
  Sender: FDA-Public Use
  Company Number: US-ROCHE-1124297

PATIENT
  Sex: Female

DRUGS (2)
  1. AVASTIN [Suspect]
     Indication: COLON CANCER
     Dosage: 1 dose
     Route: 065
     Dates: start: 20040602
  2. AVASTIN [Suspect]
     Indication: MALIGNANT PERITONEAL NEOPLASM

REACTIONS (2)
  - Death [Fatal]
  - Metastases to abdominal cavity [Unknown]
